FAERS Safety Report 10179629 (Version 1)
Quarter: 2014Q2

REPORT INFORMATION
  Report Type: Spontaneous
  Country: US (occurrence: None)
  Receive Date: 20140515
  Receipt Date: 20140515
  Transmission Date: 20141212
  Serious: No
  Sender: FDA-Public Use
  Company Number: NXG-14-005

PATIENT
  Sex: Female

DRUGS (1)
  1. FIORICET [Suspect]

REACTIONS (1)
  - Headache [None]
